FAERS Safety Report 6016007-7 (Version None)
Quarter: 2008Q4

REPORT INFORMATION
  Report Type: 
  Country: None (occurrence: None)
  Receive Date: 20081222
  Receipt Date: 20081212
  Transmission Date: 20090506
  Serious: Yes (Hospitalization)
  Sender: FDA-Public Use
  Company Number: FR-AVENTIS-200814420FR

PATIENT
  Age: 74 Year
  Sex: Female

DRUGS (7)
  1. AMARYL [Suspect]
     Indication: DIABETES MELLITUS
     Route: 048
     Dates: end: 20081113
  2. CORENITEC [Suspect]
     Indication: HYPERTENSION
     Route: 048
     Dates: start: 20081109, end: 20081113
  3. GLUCOPHAGE [Suspect]
     Indication: DIABETES MELLITUS
     Route: 048
     Dates: end: 20081113
  4. KARDEGIC                           /00002703/ [Concomitant]
     Indication: ARTERIAL OCCLUSIVE DISEASE
     Route: 048
     Dates: start: 20081106
  5. OXEOL [Concomitant]
     Indication: ASTHMA
     Route: 048
     Dates: start: 20081106
  6. ALLOPURINOL [Concomitant]
     Indication: HYPERURICAEMIA
     Route: 048
  7. ZESTORETIC [Concomitant]
     Indication: HYPERTENSION
     Route: 048
     Dates: end: 20081108

REACTIONS (3)
  - BLOOD CREATININE INCREASED [None]
  - HYPERKALAEMIA [None]
  - RENAL FAILURE ACUTE [None]
